FAERS Safety Report 4614182-X (Version None)
Quarter: 2005Q1

REPORT INFORMATION
  Report Type: 
  Country: None (occurrence: None)
  Receive Date: 20050316
  Receipt Date: 20050304
  Transmission Date: 20050727
  Serious: Yes (Other)
  Sender: FDA-Public Use
  Company Number: CIP05000134

PATIENT
  Age: 88 Year
  Sex: Female

DRUGS (8)
  1. RISEDRONATE SODIUM [Suspect]
     Indication: OSTEOPOROSIS
     Dosage: 2.5 MG DAILY, ORAL
     Route: 048
     Dates: start: 20050105, end: 20050113
  2. GASMOTIN (MOSAPRIDE CITRATE) [Concomitant]
  3. STOGAR (LAFUTIDINE) [Concomitant]
  4. APLACE (TROXIPIDE) [Concomitant]
  5. IFENPRODIL TARTRATE (IFENPRODIL TARTRATE) [Concomitant]
  6. TEPRENONE (TEPRENONE) [Concomitant]
  7. ASPIRIN [Concomitant]
  8. PREDNISOLONE [Concomitant]

REACTIONS (6)
  - BACK PAIN [None]
  - BLOOD ALKALINE PHOSPHATASE INCREASED [None]
  - CREATINE PHOSPHOKINASE DECREASED [None]
  - HYPERKALAEMIA [None]
  - PAIN [None]
  - WALKING AID USER [None]
